FAERS Safety Report 7990114-1 (Version None)
Quarter: 2011Q4

REPORT INFORMATION
  Report Type: 
  Country: None (occurrence: None)
  Receive Date: 20111219
  Receipt Date: 20110808
  Transmission Date: 20120403
  Serious: No
  Sender: FDA-Public Use
  Company Number: US-ASTRAZENECA-2011SE47332

PATIENT
  Age: 75 Year
  Sex: Female
  Weight: 65.3 kg

DRUGS (4)
  1. LERICA [Concomitant]
     Indication: BACK DISORDER
  2. NEURTOTIN [Concomitant]
     Indication: BACK DISORDER
  3. CRESTOR [Suspect]
     Route: 048
  4. SYNTHROID [Concomitant]
     Indication: THYROID DISORDER

REACTIONS (1)
  - ALOPECIA [None]
